FAERS Safety Report 23093063 (Version 2)
Quarter: 2023Q4

REPORT INFORMATION
  Report Type: Spontaneous
  Country: ES (occurrence: ES)
  Receive Date: 20231021
  Receipt Date: 20231107
  Transmission Date: 20240109
  Serious: Yes (Hospitalization)
  Sender: FDA-Public Use
  Company Number: ES-TEVA-2023-ES-2938427

PATIENT
  Age: 63 Year
  Sex: Male
  Weight: 64 kg

DRUGS (16)
  1. PACLITAXEL [Suspect]
     Active Substance: PACLITAXEL
     Indication: Pancreatic carcinoma
     Dosage: DOSE: 190MILLIGRAM EVERY 28DAYS
     Route: 042
     Dates: start: 20230821, end: 20231002
  2. GEMCITABINE [Suspect]
     Active Substance: GEMCITABINE
     Indication: Pancreatic carcinoma
     Dosage: DOSE: 1500MILLIGRAM EVERY 28 DAYS HOSPIRA
     Route: 042
     Dates: start: 20230821, end: 20231002
  3. TAMSULOSIN HYDROCHLORIDE [Concomitant]
     Active Substance: TAMSULOSIN HYDROCHLORIDE
     Indication: Benign prostatic hyperplasia
     Dosage: ONGOING
     Route: 048
     Dates: start: 20230719
  4. MYCOSTATIN [Concomitant]
     Active Substance: NYSTATIN
     Indication: Dysphagia
     Dosage: 15  DAILY; FOR 10 DAYS
  5. DEXAMETHASONE [Concomitant]
     Active Substance: DEXAMETHASONE
     Indication: Product used for unknown indication
     Dosage: 4 MILLIGRAM DAILY;
     Route: 048
  6. URSOBILANE [Concomitant]
     Indication: Product used for unknown indication
     Dosage: 600 MILLIGRAM DAILY;
  7. OLANZAPINE [Concomitant]
     Active Substance: OLANZAPINE
     Indication: Sleep disorder
     Dosage: 2.5 MG-2.5 MG-5 MG
  8. OLANZAPINE [Concomitant]
     Active Substance: OLANZAPINE
     Indication: Nervousness
  9. LORAZEPAM [Concomitant]
     Active Substance: LORAZEPAM
     Indication: Product used for unknown indication
     Dosage: 2 MILLIGRAM DAILY; 5 DAYS
  10. ZOLPIDEM [Concomitant]
     Active Substance: ZOLPIDEM TARTRATE
     Indication: Poor quality sleep
     Dosage: 10 MILLIGRAM DAILY; NIGHT
  11. MST [Concomitant]
     Indication: Pain
     Dosage: 60 MILLIGRAM DAILY;
  12. MORPHINE [Concomitant]
     Active Substance: MORPHINE
     Indication: Pain
     Dosage: 30 MILLIGRAM DAILY;
  13. ACETAMINOPHEN [Concomitant]
     Active Substance: ACETAMINOPHEN
     Indication: Pain
     Dosage: 3 GRAM DAILY;
  14. POLYETHYLENE GLYCOLS [Concomitant]
     Active Substance: POLYETHYLENE GLYCOLS
     Indication: Constipation
  15. OMEPRAZOLE [Concomitant]
     Active Substance: OMEPRAZOLE
     Indication: Gastrointestinal disorder prophylaxis
     Dosage: 20 MILLIGRAM DAILY;
  16. PRIMPERAN [Concomitant]
     Active Substance: METOCLOPRAMIDE HYDROCHLORIDE
     Indication: Nausea
     Dosage: 30 MILLIGRAM DAILY;

REACTIONS (2)
  - Pancytopenia [Recovered/Resolved]
  - Febrile neutropenia [Recovered/Resolved]

NARRATIVE: CASE EVENT DATE: 20231003
